FAERS Safety Report 7361903-1 (Version None)
Quarter: 2011Q1

REPORT INFORMATION
  Report Type: 
  Country: None (occurrence: None)
  Receive Date: 20110318
  Receipt Date: 20110311
  Transmission Date: 20110831
  Serious: Yes (Other)
  Sender: FDA-Public Use
  Company Number: ES-BRISTOL-MYERS SQUIBB COMPANY-14718589

PATIENT
  Age: 73 Year
  Sex: Male

DRUGS (10)
  1. OXALIPLATIN [Suspect]
     Indication: COLORECTAL CANCER
     Route: 042
  2. LORAZEPAM [Concomitant]
  3. MIRTAZAPINE [Concomitant]
  4. LEUCOVORIN [Suspect]
     Indication: COLORECTAL CANCER
     Dosage: ONDAYS 1 AND 2
     Route: 042
  5. 5-FLUOROURACIL [Suspect]
     Indication: COLORECTAL CANCER
     Dosage: 22HRS ON DAYS 1 AND 2 REPEATED EVERY 14 DAYS (600MG/M2),ALSO GIVEN 400MG/M2 ON DAYS 1 AND 2
     Route: 042
  6. REXER [Concomitant]
  7. TRAZODONE HCL [Concomitant]
  8. ERBITUX [Suspect]
     Indication: COLORECTAL CANCER
     Route: 042
  9. OMEPRAZOLE [Concomitant]
  10. ACETAMINOPHEN [Concomitant]

REACTIONS (6)
  - PULMONARY EMBOLISM [None]
  - MUCOSAL INFLAMMATION [None]
  - NEUROPATHY PERIPHERAL [None]
  - DERMATITIS ACNEIFORM [None]
  - THROMBOCYTOPENIA [None]
  - HAEMATURIA [None]
